FAERS Safety Report 9513497 (Version 1)
Quarter: 2013Q3

REPORT INFORMATION
  Report Type: Spontaneous
  Country: US (occurrence: US)
  Receive Date: 20130910
  Receipt Date: 20130910
  Transmission Date: 20140515
  Serious: Yes (Other)
  Sender: FDA-Public Use
  Company Number: US-TARO-2013P1006390

PATIENT
  Age: 73 Year
  Sex: Female
  Weight: 63.5 kg

DRUGS (10)
  1. WARFARIN SODIUM TABLETS USP 5MG [Suspect]
     Dates: start: 20120127
  2. WARFARIN SODIUM TABLETS USP 5MG [Suspect]
  3. WARFARIN SODIUM TABLETS USP 5MG [Suspect]
     Route: 048
     Dates: start: 201302, end: 201305
  4. WARFARIN SODIUM TABLETS USP 5MG [Suspect]
     Route: 048
     Dates: start: 201305, end: 201305
  5. WARFARIN SODIUM TABLETS USP 5MG [Suspect]
     Route: 048
     Dates: start: 201305
  6. ^NOVA-SOMETHING^ [Concomitant]
     Dates: start: 2013, end: 2013
  7. CRESTOR [Concomitant]
     Indication: BLOOD CHOLESTEROL
  8. HYDROCHLOROTHIAZIDE [Concomitant]
  9. LOPRESSOR [Concomitant]
  10. PERCOCET [Concomitant]
     Indication: BACK PAIN

REACTIONS (4)
  - Contusion [Not Recovered/Not Resolved]
  - Haemorrhage [Not Recovered/Not Resolved]
  - International normalised ratio increased [Unknown]
  - Discomfort [Not Recovered/Not Resolved]
